FAERS Safety Report 9405225 (Version 1)
Quarter: 2013Q3

REPORT INFORMATION
  Report Type: Spontaneous
  Country: IT (occurrence: IT)
  Receive Date: 20130717
  Receipt Date: 20130717
  Transmission Date: 20140515
  Serious: Yes (Hospitalization)
  Sender: FDA-Public Use
  Company Number: PHHY2013IT074147

PATIENT
  Age: 91 Year
  Sex: Male

DRUGS (3)
  1. RAMIPRIL [Suspect]
     Indication: HYPERTENSION
     Dosage: 5 MG, QD
     Route: 048
     Dates: start: 2012
  2. LASIX [Suspect]
     Indication: HYPERTENSION
     Dosage: 25 MG, QD
     Route: 048
     Dates: start: 2012
  3. ALDACTONE [Suspect]
     Dosage: 25 MG, QD
     Route: 048
     Dates: start: 2012

REACTIONS (2)
  - Renal failure acute [Recovering/Resolving]
  - Medication error [Recovering/Resolving]
